FAERS Safety Report 13296779 (Version 2)
Quarter: 2019Q3

REPORT INFORMATION
  Report Type: Spontaneous
  Country: CA (occurrence: CA)
  Receive Date: 20170306
  Receipt Date: 20190920
  Transmission Date: 20191004
  Serious: Yes (Other)
  Sender: FDA-Public Use
  Company Number: CA-TEVA-746481ACC

PATIENT
  Age: 73 Year
  Sex: Female
  Weight: 88.53 kg

DRUGS (1)
  1. TELMISARTAN. [Suspect]
     Active Substance: TELMISARTAN
     Indication: HYPERTENSION
     Route: 065

REACTIONS (3)
  - Abdominal distension [Unknown]
  - Abdominal discomfort [Unknown]
  - Product substitution issue [Unknown]
